FAERS Safety Report 17660286 (Version 2)
Quarter: 2022Q1

REPORT INFORMATION
  Report Type: Spontaneous
  Country: US (occurrence: US)
  Receive Date: 20200413
  Receipt Date: 20220110
  Transmission Date: 20220424
  Serious: No
  Sender: FDA-Public Use
  Company Number: US-PFIZER INC-2019073861

PATIENT
  Age: 65 Year
  Sex: Female
  Weight: 99.79 kg

DRUGS (3)
  1. XELJANZ XR [Suspect]
     Active Substance: TOFACITINIB CITRATE
     Indication: Rheumatoid arthritis
     Dosage: 11 MG, ONCE DAILY
     Route: 048
  2. METFORMIN [Concomitant]
     Active Substance: METFORMIN HYDROCHLORIDE
     Indication: Diabetes mellitus
     Dosage: UNK
  3. GLIMEPIRIDE [Concomitant]
     Active Substance: GLIMEPIRIDE
     Indication: Diabetes mellitus
     Dosage: 1 MG, UNK

REACTIONS (6)
  - Cardiac disorder [Unknown]
  - Cardiac murmur [Unknown]
  - Cardiomegaly [Unknown]
  - Confusional state [Unknown]
  - Pain [Unknown]
  - Memory impairment [Unknown]
